FAERS Safety Report 8887396 (Version 1)
Quarter: 2012Q4

REPORT INFORMATION
  Report Type: 
  Country: US (occurrence: US)
  Receive Date: 20121101
  Receipt Date: 20121101
  Transmission Date: 20130627
  Serious: No
  Sender: FDA-Public Use
  Company Number: US-009507513-2012SP020839

PATIENT
  Age: 58 None
  Sex: Male
  Weight: 72.58 kg

DRUGS (3)
  1. VICTRELIS [Suspect]
     Indication: HEPATITIS C
     Dosage: 800 mg, q8h for 32 weeks
     Route: 048
     Dates: start: 20120405
  2. RIBAVIRIN [Suspect]
     Indication: HEPATITIS C
     Dosage: 200 mg, Unknown
     Route: 065
     Dates: start: 20120405
  3. PEGASYS [Suspect]
     Indication: HEPATITIS C
     Dosage: UNK UNK, Unknown
     Route: 065
     Dates: start: 20120405

REACTIONS (8)
  - Injection site reaction [Unknown]
  - White blood cell count decreased [Unknown]
  - Oropharyngeal pain [Unknown]
  - Irritability [Unknown]
  - Influenza like illness [Unknown]
  - Red blood cell count decreased [Unknown]
  - Stomatitis [Unknown]
  - Pyrexia [Unknown]
